FAERS Safety Report 23750940 (Version 6)
Quarter: 2024Q3

REPORT INFORMATION
  Report Type: Spontaneous
  Country: GB (occurrence: GB)
  Receive Date: 20240417
  Receipt Date: 20240725
  Transmission Date: 20241016
  Serious: Yes (Other)
  Sender: AUROBINDO
  Company Number: GB-AUROBINDO-AUR-APL-2024-017445

PATIENT
  Sex: Male

DRUGS (19)
  1. LAMOTRIGINE [Suspect]
     Active Substance: LAMOTRIGINE
     Indication: Epilepsy
     Dosage: 400 MILLIGRAM, DAILY (FOR 5 YEARS)
     Route: 065
  2. LAMOTRIGINE [Suspect]
     Active Substance: LAMOTRIGINE
     Dosage: UNK (ON REDUCING THE DOSE OF LAMOTRIGINE BY 50 MG ON DAY 1)
     Route: 065
  3. LAMOTRIGINE [Suspect]
     Active Substance: LAMOTRIGINE
     Dosage: UNK (INCREASING THE DOSE BACK TO 200 MG)
     Route: 065
  4. LAMOTRIGINE [Suspect]
     Active Substance: LAMOTRIGINE
     Dosage: 200 MILLIGRAM, DAILY (DAY 0 FROM PRESENTATION)
     Route: 065
  5. LAMOTRIGINE [Suspect]
     Active Substance: LAMOTRIGINE
     Dosage: 150 MILLIGRAM, DAILY  (DAY 1 FROM PRESENTATION)
     Route: 065
  6. LAMOTRIGINE [Suspect]
     Active Substance: LAMOTRIGINE
     Dosage: 200 MILLIGRAM, DAILY  (BETWEEN DAY 2 AND 3)
     Route: 065
  7. LAMOTRIGINE [Suspect]
     Active Substance: LAMOTRIGINE
     Dosage: 100 MILLIGRAM, DAILY (BETWEEN DAY 5 AND 6)
     Route: 065
  8. LAMOTRIGINE [Suspect]
     Active Substance: LAMOTRIGINE
     Dosage: UNK UNK, ONCE A DAY
     Route: 065
  9. LAMOTRIGINE [Suspect]
     Active Substance: LAMOTRIGINE
     Dosage: 150 MILLIGRAM, DAILY  (BETWEEN DAY 14 AND 15
     Route: 065
  10. LAMOTRIGINE [Suspect]
     Active Substance: LAMOTRIGINE
     Dosage: 150 MILLIGRAM, DAILY  (BETWEEN DAY 16 AND 17
     Route: 065
  11. LAMOTRIGINE [Suspect]
     Active Substance: LAMOTRIGINE
     Dosage: 150 MILLIGRAM, DAILY  (BETWEEN DAY 17 AND 18
     Route: 065
  12. LEVETIRACETAM [Suspect]
     Active Substance: LEVETIRACETAM
     Indication: Epilepsy
     Dosage: 1000 MILLIGRAM, DAILY
     Route: 065
  13. LEVETIRACETAM [Suspect]
     Active Substance: LEVETIRACETAM
     Dosage: 500 MILLIGRAM, ONCE A DAY  (REDUCED DOSE; ON DAY 0)
     Route: 065
  14. LEVETIRACETAM [Suspect]
     Active Substance: LEVETIRACETAM
     Dosage: 375 MILLIGRAM, ONCE A DAY (DAY 1 FROM PRESENTATION
     Route: 065
  15. LEVETIRACETAM [Suspect]
     Active Substance: LEVETIRACETAM
     Dosage: 375 MILLIGRAM, ONCE A DAY (BETWEEN DAY 2 AND 3)
     Route: 065
  16. LEVETIRACETAM [Suspect]
     Active Substance: LEVETIRACETAM
     Dosage: 250 MILLIGRAM, ONCE A DAY (BETWEEN DAY 5 AND 6)
     Route: 065
  17. LEVETIRACETAM [Suspect]
     Active Substance: LEVETIRACETAM
     Dosage: 500 MILLIGRAM, ONCE A DAY
     Route: 065
  18. LEVETIRACETAM [Suspect]
     Active Substance: LEVETIRACETAM
     Dosage: 1000 MILLIGRAM, ONCE A DAY
     Route: 065
  19. LEVETIRACETAM [Suspect]
     Active Substance: LEVETIRACETAM
     Dosage: 125 MILLIGRAM, ONCE A DAY
     Route: 065

REACTIONS (1)
  - Toxic optic neuropathy [Recovered/Resolved]
